FAERS Safety Report 19995737 (Version 2)
Quarter: 2021Q4

REPORT INFORMATION
  Report Type: Spontaneous
  Country: ES (occurrence: ES)
  Receive Date: 20211025
  Receipt Date: 20211102
  Transmission Date: 20220303
  Serious: Yes (Death, Hospitalization, Other)
  Sender: FDA-Public Use
  Company Number: ES-AVEO ONCOLOGY-2021-AVEO-ES003651

PATIENT

DRUGS (1)
  1. FOTIVDA [Suspect]
     Active Substance: TIVOZANIB HYDROCHLORIDE
     Indication: Renal cell carcinoma
     Dosage: 890 MCG ONE DOSE

REACTIONS (5)
  - Vomiting [Recovering/Resolving]
  - Diarrhoea [Recovering/Resolving]
  - Facial paralysis [Fatal]
  - Depressed level of consciousness [Fatal]
  - Headache [Fatal]
